FAERS Safety Report 7179212-2 (Version None)
Quarter: 2010Q4

REPORT INFORMATION
  Report Type: 
  Country: None (occurrence: None)
  Receive Date: 20101217
  Receipt Date: 20101217
  Transmission Date: 20110411
  Serious: No
  Sender: FDA-Public Use
  Company Number: None

PATIENT
  Age: 65 Year
  Sex: Male
  Weight: 55 kg

DRUGS (1)
  1. EPOETIN ALFA,RECOMBINANT [Suspect]
     Indication: HAEMOLYTIC ANAEMIA
     Dosage: 40000 UNITS QWEEK SQ
     Route: 058
     Dates: start: 20100412, end: 20101005

REACTIONS (3)
  - CONTUSION [None]
  - PRODUCT CONTAMINATION PHYSICAL [None]
  - PRODUCT QUALITY ISSUE [None]
